FAERS Safety Report 20377356 (Version 1)
Quarter: 2022Q1

REPORT INFORMATION
  Report Type: Spontaneous
  Country: US (occurrence: US)
  Receive Date: 20220126
  Receipt Date: 20220126
  Transmission Date: 20220423
  Serious: No
  Sender: FDA-Public Use
  Company Number: US-NOVARTISTESTPH-NVSC2022US015683

PATIENT
  Sex: Female

DRUGS (3)
  1. LETROZOLE [Suspect]
     Active Substance: LETROZOLE
     Indication: Product used for unknown indication
     Dosage: 125 MG, QD (21 DAYS ON AND 7 DAYS OFF)
     Route: 065
  2. IBRANCE [Suspect]
     Active Substance: PALBOCICLIB
     Indication: Breast cancer
     Dosage: 125 MG, QD
     Route: 048
     Dates: start: 20211123
  3. VALTREX [Suspect]
     Active Substance: VALACYCLOVIR HYDROCHLORIDE
     Indication: Product used for unknown indication
     Dosage: UNK
     Route: 065

REACTIONS (10)
  - Pain [Recovered/Resolved]
  - Contusion [Unknown]
  - Platelet count decreased [Unknown]
  - Red blood cell count increased [Unknown]
  - Malaise [Unknown]
  - White blood cell count decreased [Unknown]
  - Bone pain [Unknown]
  - Fatigue [Recovered/Resolved]
  - Headache [Unknown]
  - Diarrhoea [Unknown]
